FAERS Safety Report 14721035 (Version 2)
Quarter: 2018Q3

REPORT INFORMATION
  Report Type: Spontaneous
  Country: GB (occurrence: GB)
  Receive Date: 20180405
  Receipt Date: 20180702
  Transmission Date: 20181010
  Serious: Yes (Other)
  Sender: FDA-Public Use
  Company Number: GB-REGENERON PHARMACEUTICALS, INC.-2018-20143

PATIENT

DRUGS (1)
  1. EYLEA [Suspect]
     Active Substance: AFLIBERCEPT
     Indication: NEOVASCULAR AGE-RELATED MACULAR DEGENERATION
     Dosage: RECEIVED 2 INJECTIONS

REACTIONS (5)
  - Blindness transient [Unknown]
  - Metamorphopsia [Unknown]
  - Cataract [Unknown]
  - Neovascular age-related macular degeneration [Unknown]
  - Injection site pain [Unknown]
